FAERS Safety Report 14689532 (Version 1)
Quarter: 2018Q1

REPORT INFORMATION
  Report Type: Spontaneous
  Country: DE (occurrence: DE)
  Receive Date: 20180328
  Receipt Date: 20180328
  Transmission Date: 20180509
  Serious: Yes (Life-Threatening)
  Sender: FDA-Public Use
  Company Number: DE-PFIZER INC-2018125258

PATIENT
  Age: 67 Year
  Sex: Male

DRUGS (3)
  1. NOVALGIN (METAMIZOLE SODIUM) [Suspect]
     Active Substance: METAMIZOLE SODIUM
     Indication: NEPHROLITHIASIS
     Dosage: 2000 MG, ONCE A DAY
     Route: 048
  2. AMOXICILLIN + CLAV. POTASSIUM [Concomitant]
     Active Substance: AMOXICILLIN\CLAVULANATE POTASSIUM
     Dosage: UNK
  3. IBUPROFEN. [Suspect]
     Active Substance: IBUPROFEN
     Indication: NEPHROLITHIASIS
     Dosage: UNK
     Route: 048

REACTIONS (7)
  - Coagulopathy [Unknown]
  - Jaundice [Unknown]
  - Hepatitis [Unknown]
  - Hepatic encephalopathy [Unknown]
  - Haemolytic uraemic syndrome [Unknown]
  - Product use in unapproved indication [Unknown]
  - Subacute hepatic failure [Unknown]

NARRATIVE: CASE EVENT DATE: 20180103
